FAERS Safety Report 5410159-5 (Version None)
Quarter: 2007Q3

REPORT INFORMATION
  Report Type: 
  Country: None (occurrence: None)
  Receive Date: 20070809
  Receipt Date: 20070802
  Transmission Date: 20080115
  Serious: Yes (Other)
  Sender: FDA-Public Use
  Company Number: AU-ABBOTT-07P-008-0369673-00

PATIENT
  Age: 34 Year

DRUGS (2)
  1. EPILIM [Interacting]
     Indication: DEPRESSION
     Dates: start: 20050515, end: 20061215
  2. PROTHIADEN [Suspect]
     Indication: DEPRESSION
     Route: 048
     Dates: start: 20060415

REACTIONS (2)
  - CONVULSION [None]
  - DRUG INTERACTION [None]
